FAERS Safety Report 13016960 (Version 1)
Quarter: 2016Q4

REPORT INFORMATION
  Report Type: Spontaneous
  Country: US (occurrence: US)
  Receive Date: 20161209
  Receipt Date: 20161209
  Transmission Date: 20170207
  Serious: Yes (Other)
  Sender: FDA-Public Use
  Company Number: None

PATIENT
  Age: 54 Year
  Sex: Male
  Weight: 94.95 kg

DRUGS (5)
  1. VITAMIN B12 [Concomitant]
     Active Substance: CYANOCOBALAMIN
  2. ATORVASTATIN [Concomitant]
     Active Substance: ATORVASTATIN
  3. VITAMIN D [Concomitant]
     Active Substance: CHOLECALCIFEROL
  4. SUBOXONE [Suspect]
     Active Substance: BUPRENORPHINE HYDROCHLORIDE\NALOXONE HYDROCHLORIDE
     Indication: DRUG DEPENDENCE
     Dosage: ?          QUANTITY:30 SUBLINGUAL;?
     Route: 060
     Dates: start: 20161209
  5. IRON [Concomitant]
     Active Substance: IRON

REACTIONS (4)
  - Drug dependence [None]
  - Insomnia [None]
  - Depression [None]
  - Restless legs syndrome [None]

NARRATIVE: CASE EVENT DATE: 20161209
